FAERS Safety Report 24462274 (Version 1)
Quarter: 2024Q4

REPORT INFORMATION
  Report Type: Spontaneous
  Country: US (occurrence: None)
  Receive Date: 20241017
  Receipt Date: 20241017
  Transmission Date: 20250115
  Serious: Yes (Other)
  Sender: Public
  Company Number: None

PATIENT
  Age: 0 Year
  Sex: Male
  Weight: 4.17 kg

DRUGS (5)
  1. LATUDA [Suspect]
     Active Substance: LURASIDONE HYDROCHLORIDE
     Indication: Bipolar disorder
     Dates: start: 20201112, end: 20210402
  2. MIRTAZAPINE [Suspect]
     Active Substance: MIRTAZAPINE
     Dates: start: 20201112
  3. LITHIUM CARBONATE [Suspect]
     Active Substance: LITHIUM CARBONATE
  4. OXCARBAZEPINE [Suspect]
     Active Substance: OXCARBAZEPINE
     Dates: start: 20201112, end: 20210127
  5. LAMOTRIGINE [Suspect]
     Active Substance: LAMOTRIGINE
     Dates: start: 20210201, end: 20210210

REACTIONS (11)
  - Tachypnoea [None]
  - Respiratory distress [None]
  - Hypoglycaemia [None]
  - Pyrexia [None]
  - Sepsis [None]
  - Meconium aspiration syndrome [None]
  - Amniotic cavity infection [None]
  - Hypertonia [None]
  - Feeling jittery [None]
  - Tremor [None]
  - Sneezing [None]

NARRATIVE: CASE EVENT DATE: 20210812
